FAERS Safety Report 17820045 (Version 6)
Quarter: 2020Q3

REPORT INFORMATION
  Report Type: Report from Study
  Country: None (occurrence: BE)
  Receive Date: 20200525
  Receipt Date: 20200929
  Transmission Date: 20201102
  Serious: Yes (Hospitalization)
  Sender: FDA-Public Use
  Company Number: BE-ABBVIE-19S-013-2819347-00

PATIENT
  Age: 78 Year
  Sex: Male
  Weight: 70 kg

DRUGS (24)
  1. DUODOPA [Suspect]
     Active Substance: CARBIDOPA\LEVODOPA
     Dosage: MD=8ML CD=4.5ML/HR DURING 16HRS  ED=2.5ML
     Route: 050
     Dates: start: 20190605, end: 20190612
  2. PROLOPA 250 [Concomitant]
     Dosage: FORM STRENGTH: 200MG/50MG; DAILY DOSE: 5 TO 7 TABLETS; RESCUE MEDICATION
     Route: 065
  3. FUROSEMIDE. [Concomitant]
     Active Substance: FUROSEMIDE
     Indication: PRODUCT USED FOR UNKNOWN INDICATION
     Route: 065
  4. TRAZODON [Concomitant]
     Active Substance: TRAZODONE HYDROCHLORIDE
     Indication: PRODUCT USED FOR UNKNOWN INDICATION
     Dates: start: 202006
  5. DUODOPA [Suspect]
     Active Substance: CARBIDOPA\LEVODOPA
     Dosage: MD=8ML, CD=4.5ML/HR DURING 16HRS, ED=2.5ML
     Route: 050
     Dates: start: 20200917
  6. LORMETAZEPAM [Concomitant]
     Active Substance: LORMETAZEPAM
     Dates: start: 202006
  7. DAFALGAN [Concomitant]
     Active Substance: ACETAMINOPHEN
     Indication: PRODUCT USED FOR UNKNOWN INDICATION
     Route: 065
  8. TRAZODON [Concomitant]
     Active Substance: TRAZODONE HYDROCHLORIDE
     Indication: PRODUCT USED FOR UNKNOWN INDICATION
  9. SIPRALEXA [Concomitant]
     Active Substance: ESCITALOPRAM OXALATE
     Indication: PRODUCT USED FOR UNKNOWN INDICATION
     Dates: start: 202006
  10. DUODOPA [Suspect]
     Active Substance: CARBIDOPA\LEVODOPA
     Dosage: MD=7ML, CD=4.9ML/HR DURING 16HRS, ED=2.5ML, ND=4ML/HR
     Route: 050
     Dates: start: 20200528, end: 20200604
  11. DUODOPA [Suspect]
     Active Substance: CARBIDOPA\LEVODOPA
     Dosage: MD=8ML, CD=4.3ML/HR DURING 16HRS, ED=2.5ML
     Route: 050
     Dates: start: 20200624, end: 20200917
  12. ATORVASTATINE [Concomitant]
     Active Substance: ATORVASTATIN
     Indication: PRODUCT USED FOR UNKNOWN INDICATION
     Route: 065
  13. LORMETAZEPAM [Concomitant]
     Active Substance: LORMETAZEPAM
     Indication: PRODUCT USED FOR UNKNOWN INDICATION
     Route: 065
  14. DUODOPA [Suspect]
     Active Substance: CARBIDOPA\LEVODOPA
     Dosage: MD=7ML, CD=4.7ML/HR DURING 16HRS, ED=2.5ML, ND=3ML/HR
     Route: 050
     Dates: start: 20200225, end: 20200330
  15. DUODOPA [Suspect]
     Active Substance: CARBIDOPA\LEVODOPA
     Dosage: MD=7ML, CD=4.7ML/HR DURING 16HRS, ED=2.5ML, ND=3,3ML/HR
     Route: 050
     Dates: start: 20200330, end: 20200428
  16. DUODOPA [Suspect]
     Active Substance: CARBIDOPA\LEVODOPA
     Indication: PARKINSON^S DISEASE
     Dosage: MD=8ML CD=4.3ML/HR DURING 16HRS ED=2.5ML
     Route: 050
     Dates: start: 20190527, end: 20190605
  17. DUODOPA [Suspect]
     Active Substance: CARBIDOPA\LEVODOPA
     Dosage: MD=8ML, CD=4.7ML/HR DURING 16HRS, ED=2.5ML
     Route: 050
     Dates: start: 20190612, end: 20200225
  18. DUODOPA [Suspect]
     Active Substance: CARBIDOPA\LEVODOPA
     Dosage: MD=7ML, CD=4.9ML/HR DURING 16HRS, ED=2.5ML, ND=4.5ML/HR
     Route: 050
     Dates: start: 20200604, end: 202006
  19. TRIBVIT [Concomitant]
     Active Substance: CYANOCOBALAMIN\FOLIC ACID\PYRIDOXINE HYDROCHLORIDE
     Indication: PRODUCT USED FOR UNKNOWN INDICATION
     Route: 065
  20. DUODOPA [Suspect]
     Active Substance: CARBIDOPA\LEVODOPA
     Dosage: MD=7ML, CD=4.9ML/HR DURING 16HRS, ED=2.5ML, ND=3,7ML/HR
     Route: 050
     Dates: start: 20200428, end: 20200528
  21. LORMETAZEPAM [Concomitant]
     Active Substance: LORMETAZEPAM
  22. LEPONEX [Concomitant]
     Active Substance: CLOZAPINE
     Indication: PRODUCT USED FOR UNKNOWN INDICATION
  23. PROLOPA 250 [Concomitant]
     Indication: PARKINSON^S DISEASE
     Dosage: FORM STRENGTH: 200MG/50MG; DAILY DOSE: 5 TO 7 TABLETS
     Route: 048
  24. LEPONEX [Concomitant]
     Active Substance: CLOZAPINE
     Indication: PRODUCT USED FOR UNKNOWN INDICATION
     Dosage: ONCE DAILY + 0.25 TABLET AT NIGHT IF NECESSARY
     Dates: start: 202006

REACTIONS (16)
  - Confusional state [Not Recovered/Not Resolved]
  - Foot deformity [Recovered/Resolved]
  - On and off phenomenon [Recovering/Resolving]
  - Aggression [Recovered/Resolved]
  - Muscle spasms [Not Recovered/Not Resolved]
  - Adverse drug reaction [Unknown]
  - Pain in extremity [Unknown]
  - Dystonia [Recovered/Resolved]
  - Malaise [Recovering/Resolving]
  - Mobility decreased [Not Recovered/Not Resolved]
  - Stoma site hypergranulation [Not Recovered/Not Resolved]
  - Hallucination [Recovered/Resolved]
  - Nocturia [Not Recovered/Not Resolved]
  - Insomnia [Recovering/Resolving]
  - Freezing phenomenon [Recovering/Resolving]
  - Stoma site hypergranulation [Recovered/Resolved]

NARRATIVE: CASE EVENT DATE: 2019
